FAERS Safety Report 12147487 (Version 1)
Quarter: 2016Q1

REPORT INFORMATION
  Report Type: Report from Study
  Country: DE (occurrence: DE)
  Receive Date: 20160304
  Receipt Date: 20160304
  Transmission Date: 20160526
  Serious: Yes (Death, Other)
  Sender: FDA-Public Use
  Company Number: DE-GLAXOSMITHKLINE-DE2016GSK031845

PATIENT
  Age: 60 Year
  Sex: Female

DRUGS (7)
  1. RETIGABINE [Suspect]
     Active Substance: EZOGABINE
     Indication: EPILEPSY
  2. HYDROCHLOROTHIAZIDE. [Concomitant]
     Active Substance: HYDROCHLOROTHIAZIDE
     Dosage: 25 MG, QD
  3. LEVETIRACETAM. [Concomitant]
     Active Substance: LEVETIRACETAM
     Dosage: 2000 MG, QD
  4. TRIMIPRAMINE [Concomitant]
     Active Substance: TRIMIPRAMINE
     Dosage: 50 MG, QD
  5. VALPROATE [Concomitant]
     Active Substance: VALPROATE SODIUM
     Indication: EPILEPSY
     Dosage: 2000 MG, UNK
  6. LEVOTHYROXINE. [Concomitant]
     Active Substance: LEVOTHYROXINE
     Dosage: 75 UG, UNK
  7. OLMESARTAN [Concomitant]
     Active Substance: OLMESARTAN
     Dosage: 40 MG, QD

REACTIONS (1)
  - Sudden death [Fatal]
